FAERS Safety Report 13909780 (Version 4)
Quarter: 2018Q4

REPORT INFORMATION
  Report Type: Report from Study
  Country: US (occurrence: US)
  Receive Date: 20170828
  Receipt Date: 20181009
  Transmission Date: 20190204
  Serious: Yes (Hospitalization)
  Sender: FDA-Public Use
  Company Number: US-EISAI MEDICAL RESEARCH-EC-2016-017471

PATIENT
  Age: 73 Year
  Sex: Female
  Weight: 62.1 kg

DRUGS (33)
  1. LENVATINIB [Suspect]
     Active Substance: LENVATINIB
     Indication: MALIGNANT MELANOMA
     Route: 048
     Dates: start: 20160219, end: 20160225
  2. LENVATINIB [Suspect]
     Active Substance: LENVATINIB
     Route: 048
     Dates: start: 20160627, end: 20160718
  3. LENVATINIB [Suspect]
     Active Substance: LENVATINIB
     Route: 048
     Dates: start: 20170309, end: 20170410
  4. OMEPRAZOLE. [Concomitant]
     Active Substance: OMEPRAZOLE
  5. LENVATINIB [Suspect]
     Active Substance: LENVATINIB
     Route: 048
     Dates: start: 20160414, end: 20160420
  6. LENVATINIB [Suspect]
     Active Substance: LENVATINIB
     Route: 048
     Dates: start: 20160606, end: 20160621
  7. LENVATINIB [Suspect]
     Active Substance: LENVATINIB
     Route: 048
     Dates: start: 20161002, end: 20161115
  8. RAMELTEON [Concomitant]
     Active Substance: RAMELTEON
  9. LENVATINIB [Suspect]
     Active Substance: LENVATINIB
     Route: 048
     Dates: start: 20160302, end: 20160309
  10. LENVATINIB [Suspect]
     Active Substance: LENVATINIB
     Route: 048
     Dates: start: 20160524, end: 20160524
  11. LENVATINIB [Suspect]
     Active Substance: LENVATINIB
     Route: 048
     Dates: start: 20160525, end: 20160602
  12. LENVATINIB [Suspect]
     Active Substance: LENVATINIB
     Route: 048
     Dates: start: 20160720, end: 20160817
  13. LENVATINIB [Suspect]
     Active Substance: LENVATINIB
     Route: 048
     Dates: start: 20170213, end: 20170306
  14. PEMBROLIZUMAB. [Suspect]
     Active Substance: PEMBROLIZUMAB
     Route: 041
     Dates: start: 20170213, end: 20170417
  15. CHOLECALCIFEROL [Concomitant]
     Active Substance: CHOLECALCIFEROL
  16. METOCLOPRAMIDE. [Concomitant]
     Active Substance: METOCLOPRAMIDE
  17. LENVATINIB [Suspect]
     Active Substance: LENVATINIB
     Route: 048
     Dates: start: 20160227, end: 20160229
  18. LENVATINIB [Suspect]
     Active Substance: LENVATINIB
     Route: 048
     Dates: start: 20160315, end: 20160403
  19. LENVATINIB [Suspect]
     Active Substance: LENVATINIB
     Route: 048
     Dates: start: 20170414, end: 20170415
  20. LENVATINIB [Suspect]
     Active Substance: LENVATINIB
     Route: 048
     Dates: start: 20170417, end: 20170417
  21. PEMBROLIZUMAB. [Suspect]
     Active Substance: PEMBROLIZUMAB
     Route: 041
     Dates: start: 20160627, end: 20161121
  22. LENVATINIB [Suspect]
     Active Substance: LENVATINIB
     Route: 048
     Dates: start: 20160421, end: 20160523
  23. LENVATINIB [Suspect]
     Active Substance: LENVATINIB
     Route: 048
     Dates: start: 20160820, end: 20160930
  24. LENVATINIB [Suspect]
     Active Substance: LENVATINIB
     Route: 048
     Dates: start: 20161117, end: 20161121
  25. LENVATINIB [Suspect]
     Active Substance: LENVATINIB
     Route: 048
     Dates: start: 20161123, end: 20161211
  26. LENVATINIB [Suspect]
     Active Substance: LENVATINIB
     Route: 048
     Dates: start: 20170419, end: 20170421
  27. CYANOCOBALAMIN. [Concomitant]
     Active Substance: CYANOCOBALAMIN
  28. LENVATINIB [Suspect]
     Active Substance: LENVATINIB
     Route: 048
     Dates: start: 20160312, end: 20160312
  29. ASCORBIC ACID. [Concomitant]
     Active Substance: ASCORBIC ACID
  30. LISINOPRIL. [Concomitant]
     Active Substance: LISINOPRIL
  31. LENVATINIB [Suspect]
     Active Substance: LENVATINIB
     Route: 048
     Dates: start: 20160310, end: 20160310
  32. PEMBROLIZUMAB. [Suspect]
     Active Substance: PEMBROLIZUMAB
     Indication: MALIGNANT MELANOMA
     Route: 041
     Dates: start: 20160219, end: 20160516
  33. MULTIVITAMIN [Concomitant]
     Active Substance: VITAMINS

REACTIONS (2)
  - Atrial fibrillation [Recovered/Resolved]
  - Urinary tract infection [Recovered/Resolved]

NARRATIVE: CASE EVENT DATE: 20160605
